FAERS Safety Report 23469741 (Version 1)
Quarter: 2024Q1

REPORT INFORMATION
  Report Type: Spontaneous
  Country: DE (occurrence: DE)
  Receive Date: 20240202
  Receipt Date: 20240202
  Transmission Date: 20240409
  Serious: Yes (Other)
  Sender: FDA-Public Use
  Company Number: None

PATIENT
  Sex: Male
  Weight: 103 kg

DRUGS (3)
  1. ATORVASTATIN CALCIUM [Suspect]
     Active Substance: ATORVASTATIN CALCIUM
     Indication: Hyperlipidaemia
     Dosage: UNK
     Route: 065
     Dates: start: 20220226, end: 20221123
  2. EZETIMIBE [Suspect]
     Active Substance: EZETIMIBE
     Indication: Acute myocardial infarction
     Dosage: UNK
     Route: 048
  3. EZETIMIBE [Suspect]
     Active Substance: EZETIMIBE
     Indication: Hyperlipidaemia

REACTIONS (5)
  - Rhabdomyolysis [Recovered/Resolved with Sequelae]
  - Drug intolerance [Unknown]
  - Muscular weakness [Recovered/Resolved with Sequelae]
  - Blood creatine phosphokinase increased [Recovered/Resolved with Sequelae]
  - Myalgia [Recovered/Resolved with Sequelae]
